FAERS Safety Report 10366597 (Version 2)
Quarter: 2014Q3

REPORT INFORMATION
  Report Type: Report from Study
  Country: MX (occurrence: MX)
  Receive Date: 20140806
  Receipt Date: 20140815
  Transmission Date: 20150326
  Serious: Yes (Other)
  Sender: FDA-Public Use
  Company Number: PHHY2014MX094970

PATIENT
  Age: 68 Year
  Sex: Female

DRUGS (5)
  1. TAFIL [Concomitant]
     Active Substance: ALPRAZOLAM
     Indication: SLEEP DISORDER
     Dosage: 0.5 DF, DAILY
     Dates: start: 1990
  2. RIVOTRIL [Concomitant]
     Active Substance: CLONAZEPAM
     Indication: SLEEP DISORDER
     Dosage: 0.5 DF, DAILY
     Dates: start: 1990
  3. CO-DIOVAN [Suspect]
     Active Substance: HYDROCHLOROTHIAZIDE\VALSARTAN
     Indication: HYPERTENSION
     Dosage: 1 DF (80/12.5 MG), DAILY
     Route: 048
  4. LACIPIL [Concomitant]
     Active Substance: LACIDIPINE
     Indication: CARDIAC DISORDER
     Dosage: 1 DF, DAILY
     Dates: start: 2000
  5. CO-DIOVAN [Suspect]
     Active Substance: HYDROCHLOROTHIAZIDE\VALSARTAN
     Dosage: 1 DF, Q48H
     Route: 048

REACTIONS (2)
  - Arrhythmia [Not Recovered/Not Resolved]
  - Drug intolerance [Unknown]
